FAERS Safety Report 7340954-7 (Version None)
Quarter: 2011Q1

REPORT INFORMATION
  Report Type: 
  Country: None (occurrence: None)
  Receive Date: 20110309
  Receipt Date: 20100913
  Transmission Date: 20110831
  Serious: No
  Sender: FDA-Public Use
  Company Number: US-ABBOTT-10P-163-0671435-00

PATIENT
  Sex: Female
  Weight: 88.53 kg

DRUGS (3)
  1. TOPROL-XL [Concomitant]
     Indication: HYPERTENSION
     Dates: start: 20070101
  2. HYDROCHLOROTHIAZIDE [Concomitant]
     Indication: HYPERTENSION
     Dates: start: 20080101
  3. LUPRON DEPOT [Suspect]
     Indication: UTERINE LEIOMYOMA
     Dates: start: 20100601, end: 20100901

REACTIONS (2)
  - HOT FLUSH [None]
  - WEIGHT DECREASED [None]
